FAERS Safety Report 8452450-4 (Version None)
Quarter: 2012Q2

REPORT INFORMATION
  Report Type: 
  Country: None (occurrence: None)
  Receive Date: 20120620
  Receipt Date: 20120411
  Transmission Date: 20120825
  Serious: No
  Sender: FDA-Public Use
  Company Number: US-VERTEX PHARMACEUTICALS INC.-AE-2012-005224

PATIENT
  Sex: Male
  Weight: 88.984 kg

DRUGS (7)
  1. INCIVEK [Suspect]
     Indication: HEPATITIS C
     Route: 048
     Dates: start: 20120327, end: 20120403
  2. RIBAVIRIN [Concomitant]
     Indication: HEPATITIS C
     Route: 048
     Dates: start: 20120327, end: 20120403
  3. CELEXA [Concomitant]
     Route: 048
  4. PROPRANOLOL [Concomitant]
  5. NEXIUM [Concomitant]
     Route: 048
  6. OXYCODONE HCL [Concomitant]
  7. PEGASYS [Concomitant]
     Indication: HEPATITIS C
     Route: 058
     Dates: start: 20120327, end: 20120403

REACTIONS (2)
  - OROPHARYNGEAL PAIN [None]
  - CONFUSIONAL STATE [None]
